FAERS Safety Report 16665247 (Version 2)
Quarter: 2021Q3

REPORT INFORMATION
  Report Type: Spontaneous
  Country: US (occurrence: US)
  Receive Date: 20190803
  Receipt Date: 20210806
  Transmission Date: 20211014
  Serious: Yes (Other)
  Sender: FDA-Public Use
  Company Number: US-ACCORD-123953

PATIENT
  Age: 43 Year
  Sex: Female

DRUGS (4)
  1. HERCEPTIN [Suspect]
     Active Substance: TRASTUZUMAB
     Indication: BREAST CANCER
     Dates: start: 20131107, end: 20140303
  2. DOCETAXEL ACCORD [Suspect]
     Active Substance: DOCETAXEL
     Indication: BREAST CANCER
     Dates: start: 20131107, end: 20140303
  3. LABETALOL [Concomitant]
     Active Substance: LABETALOL\LABETALOL HYDROCHLORIDE
  4. PARAPLATIN [Suspect]
     Active Substance: CARBOPLATIN
     Indication: BREAST CANCER
     Dates: start: 20131107, end: 20140303

REACTIONS (1)
  - Alopecia [Not Recovered/Not Resolved]

NARRATIVE: CASE EVENT DATE: 20131201
